FAERS Safety Report 4351525-9 (Version None)
Quarter: 2004Q2

REPORT INFORMATION
  Report Type: 
  Country: None (occurrence: None)
  Receive Date: 20040503
  Receipt Date: 20040426
  Transmission Date: 20050107
  Serious: Yes (Life-Threatening)
  Sender: FDA-Public Use
  Company Number: 200414440GDDC

PATIENT
  Age: 63 Year
  Sex: Female

DRUGS (5)
  1. ARAVA [Suspect]
     Indication: RHEUMATOID ARTHRITIS
     Route: 048
     Dates: start: 20040101, end: 20040101
  2. DICLOFENAC [Concomitant]
     Indication: RHEUMATOID ARTHRITIS
     Route: 048
  3. RABERPRAZOLE [Concomitant]
     Dosage: DOSE: UNK
     Route: 048
  4. PREDNISOLONE [Concomitant]
     Route: 048
  5. PREMARIN [Concomitant]
     Dosage: DOSE: UNK

REACTIONS (1)
  - ACUTE MYOCARDIAL INFARCTION [None]
